FAERS Safety Report 7978280-5 (Version None)
Quarter: 2011Q4

REPORT INFORMATION
  Report Type: 
  Country: None (occurrence: None)
  Receive Date: 20111214
  Receipt Date: 20111212
  Transmission Date: 20120403
  Serious: Yes (Other)
  Sender: FDA-Public Use
  Company Number: IL-PFIZER INC-2011277391

PATIENT
  Age: 75 Year
  Sex: Male

DRUGS (2)
  1. LYRICA [Suspect]
     Dosage: 150 UNITS UNKNOWN, TWICE DAILY
     Route: 048
  2. LYRICA [Suspect]
     Indication: NEURALGIA
     Dosage: 150 UNITS UNKNOWN, 1.5 TIMES A DAY
     Route: 048

REACTIONS (2)
  - PERICARDIAL EFFUSION [None]
  - OEDEMA PERIPHERAL [None]
